FAERS Safety Report 5486431-X (Version None)
Quarter: 2007Q4

REPORT INFORMATION
  Report Type: 
  Country: None (occurrence: None)
  Receive Date: 20071012
  Receipt Date: 20071002
  Transmission Date: 20080405
  Serious: Yes (Hospitalization)
  Sender: FDA-Public Use
  Company Number: MPS1-10558

PATIENT
  Age: 23 Year
  Sex: Female
  Weight: 57.7 kg

DRUGS (7)
  1. ALDURAZYME [Suspect]
     Indication: MUCOPOLYSACCHARIDOSIS I
     Dosage: 0.58 MG/KG QWK IV
     Route: 042
     Dates: start: 20050517
  2. REQUIP. MFR: SMITH KLINE BEECHAM [Concomitant]
  3. NADOLOL [Concomitant]
  4. ZYRTEC. MFR: UCB CHEMIE GMBH [Concomitant]
  5. NEURONTIN. MFR: PARKE, DAVIS AND COMPANY [Concomitant]
  6. TOPAMAX. MFR: JANSSEN-CILAG [Concomitant]
  7. ARICEPT. MFR: EISAI [Concomitant]

REACTIONS (4)
  - CONDITION AGGRAVATED [None]
  - HEADACHE [None]
  - INTRACRANIAL PRESSURE INCREASED [None]
  - NAUSEA [None]
